FAERS Safety Report 16352299 (Version 18)
Quarter: 2022Q1

REPORT INFORMATION
  Report Type: Report from Study
  Country: CA (occurrence: CA)
  Receive Date: 20190524
  Receipt Date: 20220227
  Transmission Date: 20220424
  Serious: Yes (Hospitalization, Other)
  Sender: FDA-Public Use
  Company Number: PHHO2019CA004206

PATIENT
  Age: 15 Year
  Sex: Female
  Weight: 50.8 kg

DRUGS (6)
  1. TRAMETINIB [Suspect]
     Active Substance: TRAMETINIB
     Indication: Astrocytoma
     Dosage: 1.25 MG
     Route: 048
     Dates: start: 20180725, end: 20181213
  2. TRAMETINIB [Suspect]
     Active Substance: TRAMETINIB
     Dosage: 1.5 MG
     Route: 065
     Dates: start: 20181214, end: 20190403
  3. TRAMETINIB [Suspect]
     Active Substance: TRAMETINIB
     Dosage: 1.25 MG
     Route: 065
     Dates: start: 20190404, end: 20190415
  4. DABRAFENIB [Suspect]
     Active Substance: DABRAFENIB
     Indication: Astrocytoma
     Dosage: 250 MG
     Route: 048
     Dates: start: 20180725, end: 20190501
  5. DABRAFENIB [Suspect]
     Active Substance: DABRAFENIB
     Dosage: 250 MG
     Route: 065
     Dates: start: 20190514, end: 20201112
  6. NITROPRUSSIDE [Concomitant]
     Active Substance: NITROPRUSSIDE
     Indication: Product used for unknown indication
     Dosage: UNK
     Route: 041

REACTIONS (7)
  - Leukoencephalopathy [Recovered/Resolved]
  - Hypertension [Recovered/Resolved]
  - Pyrexia [Recovered/Resolved]
  - Ejection fraction decreased [Recovered/Resolved]
  - Ejection fraction decreased [Recovered/Resolved]
  - Seizure [Recovered/Resolved]
  - Hypotension [Recovered/Resolved]

NARRATIVE: CASE EVENT DATE: 20190413
